FAERS Safety Report 7218246-6 (Version None)
Quarter: 2011Q1

REPORT INFORMATION
  Report Type: 
  Country: None (occurrence: None)
  Receive Date: 20110110
  Receipt Date: 20110103
  Transmission Date: 20110831
  Serious: Yes (Other)
  Sender: FDA-Public Use
  Company Number: BR-PFIZER INC-2010175279

PATIENT
  Age: 46 Year
  Sex: Female
  Weight: 61 kg

DRUGS (3)
  1. CHAMPIX [Suspect]
     Dosage: 0.5 MG, 2X/DAY
     Route: 048
     Dates: start: 20100101, end: 20101230
  2. CHAMPIX [Suspect]
     Dosage: UNK
     Route: 048
     Dates: start: 20101205, end: 20100101
  3. CHAMPIX [Suspect]
     Indication: SMOKING CESSATION THERAPY
     Dosage: UNK
     Route: 048
     Dates: start: 20080101

REACTIONS (2)
  - VISUAL IMPAIRMENT [None]
  - VISUAL FIELD DEFECT [None]
